FAERS Safety Report 5248663-5 (Version None)
Quarter: 2007Q1

REPORT INFORMATION
  Report Type: 
  Country: None (occurrence: None)
  Receive Date: 20070227
  Receipt Date: 20070227
  Transmission Date: 20070707
  Serious: No
  Sender: FDA-Public Use
  Company Number: None

PATIENT
  Sex: Male
  Weight: 59.8748 kg

DRUGS (9)
  1. PACLITAXEL [Suspect]
     Indication: NON-SMALL CELL LUNG CANCER STAGE IV
     Dosage: 300 MG ONCE OVER 3 HR IV
     Route: 042
     Dates: start: 20070214
  2. DEXTROSE [Suspect]
     Dosage: 450 ML ONCE OVER 3 HR IV
     Route: 042
     Dates: start: 20070214
  3. TYLENOL [Concomitant]
  4. VICODIN [Concomitant]
  5. SENNA [Concomitant]
  6. FERROUS SULFATE TAB [Concomitant]
  7. FUROSEMIDE [Concomitant]
  8. RAMIPRIL [Concomitant]
  9. CRESTOR [Concomitant]

REACTIONS (4)
  - BLOOD PRESSURE DECREASED [None]
  - FEELING HOT [None]
  - FLUSHING [None]
  - INFUSION RELATED REACTION [None]
